FAERS Safety Report 9818825 (Version 3)
Quarter: 2014Q2

REPORT INFORMATION
  Report Type: Spontaneous
  Country: US (occurrence: US)
  Receive Date: 20140115
  Receipt Date: 20140613
  Transmission Date: 20141212
  Serious: No
  Sender: FDA-Public Use
  Company Number: US-PFIZER INC-2014010180

PATIENT
  Age: 59 Year
  Sex: Male
  Weight: 74.83 kg

DRUGS (3)
  1. INLYTA [Suspect]
     Indication: RENAL CANCER METASTATIC
     Dosage: 5 MG, 2XDAY
     Route: 048
     Dates: start: 201309
  2. INLYTA [Suspect]
     Dosage: 5 MG, 2XDAY
     Route: 048
     Dates: start: 20140523
  3. TESTOSTERONE [Concomitant]
     Dosage: UNK

REACTIONS (7)
  - Temporomandibular joint syndrome [Not Recovered/Not Resolved]
  - Red blood cell count increased [Unknown]
  - Trigeminal neuralgia [Unknown]
  - Fatigue [Unknown]
  - Neuropathy peripheral [Unknown]
  - Dysphonia [Unknown]
  - Thyroid disorder [Unknown]
